FAERS Safety Report 23525278 (Version 1)
Quarter: 2024Q1

REPORT INFORMATION
  Report Type: Spontaneous
  Country: US (occurrence: US)
  Receive Date: 20240215
  Receipt Date: 20240215
  Transmission Date: 20240410
  Serious: No
  Sender: FDA-Public Use
  Company Number: US-ABBVIE-5640114

PATIENT
  Age: 73 Year
  Sex: Female
  Weight: 77.11 kg

DRUGS (1)
  1. RECTIV [Suspect]
     Active Substance: NITROGLYCERIN
     Indication: Anorectal disorder
     Dosage: FORM STRENGTH: NITROGLYCERIN 0.4 PERCENT
     Route: 065
     Dates: start: 20240124, end: 20240125

REACTIONS (3)
  - Illness [Recovered/Resolved]
  - Anorectal disorder [Recovered/Resolved]
  - Feeling abnormal [Recovered/Resolved]

NARRATIVE: CASE EVENT DATE: 20240124
